FAERS Safety Report 7362792-1 (Version None)
Quarter: 2011Q1

REPORT INFORMATION
  Report Type: 
  Country: None (occurrence: None)
  Receive Date: 20110321
  Receipt Date: 20110310
  Transmission Date: 20110831
  Serious: No
  Sender: FDA-Public Use
  Company Number: US-BIOGENIDEC-2011BI008817

PATIENT
  Sex: Male

DRUGS (1)
  1. TYSABRI [Suspect]
     Indication: MULTIPLE SCLEROSIS
     Route: 042
     Dates: start: 20080905, end: 20110107

REACTIONS (11)
  - VISUAL ACUITY REDUCED [None]
  - TREATMENT NONCOMPLIANCE [None]
  - DRUG ABUSE [None]
  - MENTAL DISORDER [None]
  - BURNING SENSATION [None]
  - PAIN IN EXTREMITY [None]
  - WEIGHT DECREASED [None]
  - DEPRESSION [None]
  - NIGHT SWEATS [None]
  - BACK PAIN [None]
  - STRESS [None]
